FAERS Safety Report 13305379 (Version 1)
Quarter: 2017Q1

REPORT INFORMATION
  Report Type: Spontaneous
  Country: US (occurrence: US)
  Receive Date: 20170308
  Receipt Date: 20170308
  Transmission Date: 20170428
  Serious: No
  Sender: FDA-Public Use
  Company Number: US-BAUSCH-BL-2016-002437

PATIENT
  Age: 68 Year
  Sex: Female
  Weight: 88.08 kg

DRUGS (6)
  1. UCERIS [Suspect]
     Active Substance: BUDESONIDE
     Indication: COLITIS ULCERATIVE
     Route: 048
     Dates: start: 20160126
  2. PRAVASTATIN. [Concomitant]
     Active Substance: PRAVASTATIN
     Indication: HYPERLIPIDAEMIA
     Route: 065
  3. BALSALAZIDE [Concomitant]
     Active Substance: BALSALAZIDE
     Indication: COLITIS ULCERATIVE
     Route: 065
  4. TRIAMCINOLONE CREAM [Concomitant]
     Active Substance: TRIAMCINOLONE
     Indication: ECZEMA
     Route: 065
  5. ASPIRIN. [Concomitant]
     Active Substance: ASPIRIN
     Indication: CEREBROVASCULAR ACCIDENT
  6. ASPIRIN. [Concomitant]
     Active Substance: ASPIRIN
     Indication: MYOCARDIAL INFARCTION
     Route: 065

REACTIONS (2)
  - Fall [Not Recovered/Not Resolved]
  - Local swelling [Not Recovered/Not Resolved]

NARRATIVE: CASE EVENT DATE: 20160127
